FAERS Safety Report 15180384 (Version 3)
Quarter: 2019Q1

REPORT INFORMATION
  Report Type: Spontaneous
  Country: DE (occurrence: DE)
  Receive Date: 20180723
  Receipt Date: 20190311
  Transmission Date: 20190417
  Serious: Yes (Hospitalization, Other)
  Sender: FDA-Public Use
  Company Number: DE-DRREDDYS-GER/GER/18/0102205

PATIENT
  Age: 49 Year
  Sex: Female
  Weight: 72 kg

DRUGS (8)
  1. DOCETAXEL. [Suspect]
     Active Substance: DOCETAXEL
     Indication: BREAST CANCER METASTATIC
     Dosage: TREATMENT PRIOR TO SAE: 31/AUG/2016
     Route: 042
     Dates: start: 20160810
  2. HERCEPTIN [Suspect]
     Active Substance: TRASTUZUMAB
     Indication: BREAST CANCER METASTATIC
     Dosage: DATE OF MOST RECENT DOSE OF PERTUZUMAB AND TRASTUZUMAB PRIOR TO SECOND EPISODE OF ANAEMIA ON 10/MAY/
     Route: 042
     Dates: start: 20160831
  3. TAVEGIL [Concomitant]
     Active Substance: CLEMASTINE FUMARATE
     Indication: HYPERSENSITIVITY
     Route: 048
  4. PERTUZUMAB. [Suspect]
     Active Substance: PERTUZUMAB
     Indication: BREAST CANCER METASTATIC
     Dosage: TREATMENT PRIOR TO SAE: 31/AUG/2016
     Route: 042
     Dates: start: 20160805
  5. PANTOPRAZOL [Concomitant]
     Active Substance: PANTOPRAZOLE SODIUM
     Indication: PROPHYLAXIS
     Route: 048
  6. ZOLEDRONIC ACID [Suspect]
     Active Substance: ZOLEDRONIC ACID
     Indication: PRODUCT USED FOR UNKNOWN INDICATION
     Dosage: INDICATION: BONE SPECIFIC THERAPY
     Route: 065
     Dates: start: 20161012
  7. PERTUZUMAB. [Suspect]
     Active Substance: PERTUZUMAB
     Dosage: DATE OF MOST RECENT DOSE OF PERTUZUMAB AND TRASTUZUMAB PRIOR TO SECOND EPISODE OF ANAEMIA ON 10/MAY/
     Route: 042
     Dates: start: 20160831
  8. HERCEPTIN [Suspect]
     Active Substance: TRASTUZUMAB
     Dosage: TREATMENT PRIOR TO SAE: 31/AUG/2016
     Route: 042
     Dates: start: 20160805

REACTIONS (12)
  - Febrile neutropenia [Not Recovered/Not Resolved]
  - Alopecia [Recovered/Resolved]
  - Polyneuropathy [Recovered/Resolved]
  - Pruritus [Recovered/Resolved]
  - Diarrhoea [Recovered/Resolved]
  - Back pain [Recovered/Resolved]
  - Neutropenia [Recovered/Resolved]
  - Nasopharyngitis [Recovered/Resolved]
  - Nail toxicity [Recovered/Resolved]
  - Anaemia [Recovered/Resolved]
  - Epistaxis [Recovered/Resolved]
  - Skin toxicity [Recovered/Resolved]

NARRATIVE: CASE EVENT DATE: 20160810
